FAERS Safety Report 8977484 (Version 2)
Quarter: 2013Q2

REPORT INFORMATION
  Report Type: Report from Study
  Country: BR (occurrence: BR)
  Receive Date: 20121220
  Receipt Date: 20130408
  Transmission Date: 20140414
  Serious: Yes (Hospitalization, Other)
  Sender: FDA-Public Use
  Company Number: BR-BAYER-2012-123949

PATIENT
  Age: 33 Year
  Sex: Female
  Weight: 62 kg

DRUGS (3)
  1. YASMIN [Suspect]
     Indication: CONTRACEPTION
     Dosage: UNK
     Route: 048
     Dates: start: 201106, end: 201210
  2. LACTULOSE [Concomitant]
     Indication: ABDOMINAL DISCOMFORT
  3. OMEPRAZOLE [Concomitant]
     Indication: GASTRITIS
     Dosage: 1 DF, QD
     Route: 048
     Dates: start: 2012, end: 201210

REACTIONS (22)
  - Portal vein thrombosis [Recovered/Resolved with Sequelae]
  - Hepatic necrosis [Recovered/Resolved with Sequelae]
  - Hepatic rupture [Not Recovered/Not Resolved]
  - Abdominal distension [Not Recovered/Not Resolved]
  - Abdominal pain [Not Recovered/Not Resolved]
  - Muscular weakness [Not Recovered/Not Resolved]
  - Splenomegaly [Unknown]
  - Polycythaemia vera [Unknown]
  - Antiphospholipid syndrome [Unknown]
  - Hepatic ischaemia [Recovered/Resolved with Sequelae]
  - Renal impairment [Recovered/Resolved]
  - Platelet count increased [Unknown]
  - Feeding disorder [Not Recovered/Not Resolved]
  - Functional gastrointestinal disorder [None]
  - Ascites [Not Recovered/Not Resolved]
  - Liver disorder [Recovered/Resolved with Sequelae]
  - Uterine leiomyoma [Not Recovered/Not Resolved]
  - Renal disorder [Not Recovered/Not Resolved]
  - Fatigue [Not Recovered/Not Resolved]
  - Alopecia [Recovered/Resolved]
  - Muscular weakness [Not Recovered/Not Resolved]
  - Acne [Not Recovered/Not Resolved]
